FAERS Safety Report 8189142-5 (Version None)
Quarter: 2012Q1

REPORT INFORMATION
  Report Type: 
  Country: None (occurrence: None)
  Receive Date: 20120307
  Receipt Date: 20120227
  Transmission Date: 20120608
  Serious: Yes (Death, Other)
  Sender: FDA-Public Use
  Company Number: BR-AMGEN-BRASP2012013196

PATIENT
  Age: 65 Year
  Sex: Female

DRUGS (3)
  1. PREDNISONE TAB [Suspect]
     Dosage: UNK
  2. ENBREL [Suspect]
     Indication: RHEUMATOID ARTHRITIS
     Dosage: 50 MG, WEEKLY
     Route: 058
  3. ARAVA [Concomitant]
     Dosage: UNK

REACTIONS (4)
  - INFARCTION [None]
  - CHEST PAIN [None]
  - HYPERTENSION [None]
  - SENSATION OF HEAVINESS [None]
